FAERS Safety Report 7384746-1 (Version None)
Quarter: 2011Q1

REPORT INFORMATION
  Report Type: 
  Country: None (occurrence: None)
  Receive Date: 20110330
  Receipt Date: 20110317
  Transmission Date: 20110831
  Serious: Yes (Other)
  Sender: FDA-Public Use
  Company Number: PHHY2011NL22469

PATIENT
  Sex: Female

DRUGS (7)
  1. ZOMETA [Suspect]
     Indication: MULTIPLE MYELOMA
     Dosage: UNK
     Route: 042
     Dates: start: 20090714
  2. SODIUM CHLORIDE [Concomitant]
  3. ARCOXIA [Concomitant]
     Dosage: 60 MG, QD
  4. ZOMETA [Suspect]
     Dosage: 04 MG/05 ML
     Dates: start: 20110203
  5. NEXIUM [Concomitant]
     Dosage: 10 MG, 1 SACHET ONCE DAILY
  6. PREDNISOLONE [Concomitant]
     Dosage: 5 MG/ML 7 DAYS 2ML, AFTER THAT 7 DAYS 1 ML
  7. ACETYLSALICYLIC ACID [Concomitant]
     Dosage: 80 MG, 1DD1

REACTIONS (7)
  - DYSPHAGIA [None]
  - MALAISE [None]
  - GENERAL PHYSICAL HEALTH DETERIORATION [None]
  - RESPIRATORY TRACT INFECTION [None]
  - OEDEMA PERIPHERAL [None]
  - FATIGUE [None]
  - DYSPNOEA [None]
